FAERS Safety Report 12506458 (Version 1)
Quarter: 2016Q2

REPORT INFORMATION
  Report Type: Spontaneous
  Country: CH (occurrence: CH)
  Receive Date: 20160628
  Receipt Date: 20160628
  Transmission Date: 20160815
  Serious: Yes (Hospitalization, Other)
  Sender: FDA-Public Use
  Company Number: CH-B.I. PHARMACEUTICALS,INC./RIDGEFIELD-2016-BI-26030SI

PATIENT
  Age: 35 Year
  Sex: Female

DRUGS (4)
  1. ENALAPRIL [Concomitant]
     Active Substance: ENALAPRIL
     Indication: HYPERTONIA
     Route: 065
     Dates: start: 20080101
  2. ACTIVELLE [Concomitant]
     Active Substance: ESTRADIOL\NORETHINDRONE ACETATE
     Indication: PROPHYLAXIS
     Dosage: DOSE PER APP: 1/0.5 MG
     Route: 048
  3. VIRAMUNE [Suspect]
     Active Substance: NEVIRAPINE
     Indication: HIV INFECTION CDC CATEGORY B
     Dosage: 400 MG
     Route: 048
     Dates: start: 20150930, end: 20160401
  4. CALCIMAGON [Concomitant]
     Active Substance: CALCIUM
     Indication: OSTEOPENIA
     Route: 065
     Dates: start: 20150703

REACTIONS (1)
  - Skin ulcer [Not Recovered/Not Resolved]

NARRATIVE: CASE EVENT DATE: 201601
